FAERS Safety Report 7543294-6 (Version None)
Quarter: 2011Q2

REPORT INFORMATION
  Report Type: 
  Country: None (occurrence: None)
  Receive Date: 20110613
  Receipt Date: 20110606
  Transmission Date: 20111010
  Serious: Yes (Other)
  Sender: FDA-Public Use
  Company Number: CA-PFIZER INC-2011095823

PATIENT
  Age: 88 Year
  Sex: Female

DRUGS (6)
  1. NITROGLYCERIN [Concomitant]
     Indication: ANGINA PECTORIS
     Dosage: 1 PATCH, DAILY
     Route: 062
     Dates: start: 19960501
  2. ASPIRIN [Concomitant]
     Indication: ANGINA PECTORIS
     Dosage: 1 PILL 1X/DAY
     Route: 048
     Dates: start: 19960501
  3. XALATAN [Suspect]
     Indication: GLAUCOMA
     Dosage: 1 DROP PER EYE, 1X/DAY
     Route: 047
     Dates: start: 20050501
  4. DILTIAZEM [Concomitant]
     Indication: ANGINA PECTORIS
     Dosage: 240 MG, 1X/DAY
     Route: 048
     Dates: start: 19960501
  5. ATENOLOL [Concomitant]
     Indication: ANGINA PECTORIS
     Dosage: 1/4 PILL (81MG), 1X/DAY
     Route: 048
     Dates: start: 19960501
  6. FOSAVANCE [Concomitant]
     Indication: OSTEOPOROSIS
     Dosage: 1 PILL PER WEEK
     Route: 048
     Dates: start: 19960501

REACTIONS (2)
  - CATARACT OPERATION [None]
  - EYE PAIN [None]
